FAERS Safety Report 21786946 (Version 1)
Quarter: 2022Q4

REPORT INFORMATION
  Report Type: Spontaneous
  Country: US (occurrence: US)
  Receive Date: 20221228
  Receipt Date: 20221228
  Transmission Date: 20230113
  Serious: Yes (Hospitalization)
  Sender: FDA-Public Use
  Company Number: US-drreddys-SPO/USA/22/0158917

PATIENT
  Age: 64 Year
  Sex: Male

DRUGS (12)
  1. LENALIDOMIDE [Suspect]
     Active Substance: LENALIDOMIDE
     Indication: Plasma cell myeloma
     Dosage: TAKE 1 CAPSULE BY MOUTH EVERY DAY
     Route: 048
     Dates: start: 20221109
  2. FAMOTIDINE [Concomitant]
     Active Substance: FAMOTIDINE
     Indication: Product used for unknown indication
  3. OZEMPIC (1 M SOP 4MG/3ML [Concomitant]
     Indication: Product used for unknown indication
     Dosage: 4MG/3ML
  4. ASPIRIN TBE 81MG [Concomitant]
     Indication: Product used for unknown indication
  5. GABAPENTIN [Concomitant]
     Active Substance: GABAPENTIN
     Indication: Product used for unknown indication
  6. ACYCLOVIR [Concomitant]
     Active Substance: ACYCLOVIR
     Indication: Product used for unknown indication
  7. ATOVAQUONE SUS 750MG/5ML [Concomitant]
     Indication: Product used for unknown indication
     Dosage: 750MG/5ML
  8. DARZALEX SOL 100MG/5ML [Concomitant]
     Indication: Product used for unknown indication
     Dosage: 100MG/5ML
  9. DUTASTERIDE [Concomitant]
     Active Substance: DUTASTERIDE
     Indication: Product used for unknown indication
  10. HYDROCHLOROT TAB 25MG [Concomitant]
     Indication: Product used for unknown indication
  11. ICOSAPENT ET CAP 1GM [Concomitant]
     Indication: Product used for unknown indication
  12. LANTUS SOLOS SOP 100UNIT/ [Concomitant]
     Indication: Product used for unknown indication
     Dosage: 100UNIT/, TAB 10-20MG

REACTIONS (2)
  - Hospitalisation [Unknown]
  - Product dose omission issue [Unknown]
